FAERS Safety Report 9776139 (Version 3)
Quarter: 2014Q2

REPORT INFORMATION
  Report Type: Spontaneous
  Country: CA (occurrence: CA)
  Receive Date: 20131220
  Receipt Date: 20140417
  Transmission Date: 20141212
  Serious: Yes (Other)
  Sender: FDA-Public Use
  Company Number: CA-TEVA-452498USA

PATIENT
  Age: 76 Year
  Sex: Male

DRUGS (2)
  1. TREANDA [Suspect]
     Indication: MANTLE CELL LYMPHOMA
     Dosage: 90 MG/M2 DAILY;
     Route: 042
     Dates: start: 201305, end: 201308
  2. RITUXIMAB [Suspect]
     Indication: MANTLE CELL LYMPHOMA
     Route: 042
     Dates: start: 201305, end: 201308

REACTIONS (3)
  - Delirium [Unknown]
  - Pneumonia [Unknown]
  - Off label use [Unknown]
